FAERS Safety Report 11595652 (Version 1)
Quarter: 2015Q4

REPORT INFORMATION
  Report Type: Spontaneous
  Country: US (occurrence: None)
  Receive Date: 20151005
  Receipt Date: 20151005
  Transmission Date: 20160304
  Serious: Yes (Life-Threatening)
  Sender: FDA-Public Use
  Company Number: None

PATIENT
  Age: 73 Year
  Sex: Male
  Weight: 71.67 kg

DRUGS (16)
  1. DEXAMETHASONE. [Concomitant]
     Active Substance: DEXAMETHASONE
  2. XARELTO [Concomitant]
     Active Substance: RIVAROXABAN
  3. PROPAFENONE. [Concomitant]
     Active Substance: PROPAFENONE
  4. PACLITAXEL. [Concomitant]
     Active Substance: PACLITAXEL
  5. FAMOTIDINE. [Concomitant]
     Active Substance: FAMOTIDINE
  6. TELMISARTAN. [Concomitant]
     Active Substance: TELMISARTAN
  7. PACLITAXEL. [Suspect]
     Active Substance: PACLITAXEL
     Indication: NON-SMALL CELL LUNG CANCER
     Route: 042
     Dates: start: 20150811, end: 20150811
  8. ONDANSETRON [Concomitant]
     Active Substance: ONDANSETRON
  9. SYMBICORT [Concomitant]
     Active Substance: BUDESONIDE\FORMOTEROL FUMARATE DIHYDRATE
  10. METOPROLOL TARTRATE. [Concomitant]
     Active Substance: METOPROLOL TARTRATE
  11. LISINOPRIL. [Concomitant]
     Active Substance: LISINOPRIL
  12. ACETAMINOPHEN. [Concomitant]
     Active Substance: ACETAMINOPHEN
  13. DIPHENHYDRAMINE. [Concomitant]
     Active Substance: DIPHENHYDRAMINE
  14. OXYCODONE/ACETAMINOPHEN [Concomitant]
     Active Substance: ACETAMINOPHEN\OXYCODONE HYDROCHLORIDE
  15. FELODIPINE. [Concomitant]
     Active Substance: FELODIPINE
  16. ALBUTEROL INHALER [Concomitant]
     Active Substance: ALBUTEROL

REACTIONS (1)
  - Cardio-respiratory arrest [None]

NARRATIVE: CASE EVENT DATE: 20150811
